FAERS Safety Report 5820143-5 (Version None)
Quarter: 2008Q3

REPORT INFORMATION
  Report Type: 
  Country: None (occurrence: None)
  Receive Date: 20080724
  Receipt Date: 20080710
  Transmission Date: 20090109
  Serious: No
  Sender: FDA-Public Use
  Company Number: PHEH2008US05675

PATIENT
  Sex: Female
  Weight: 84.354 kg

DRUGS (14)
  1. RECLAST [Suspect]
     Indication: OSTEOPOROSIS
     Dosage: 5 MG, UNK
     Dates: start: 20080623
  2. METFORMIN [Concomitant]
     Indication: DIABETES MELLITUS
     Dosage: 500 MG, QD
     Route: 048
     Dates: start: 20071001
  3. PREVACID [Concomitant]
     Indication: GASTROOESOPHAGEAL REFLUX DISEASE
     Dosage: 30 MG, QD
     Route: 048
  4. ASPIRIN [Concomitant]
     Dosage: 81 MG
  5. DIAZEPAM [Concomitant]
     Indication: ANXIETY
     Dosage: 5 MG, QHS
     Route: 048
     Dates: start: 20071001
  6. POTASSIUM CHLORIDE [Concomitant]
     Indication: DIURETIC THERAPY
     Dosage: 550 MG, QD
     Dates: start: 20071001
  7. LISINOPRIL AND HYDROCHLOROTHIAZIDE [Concomitant]
     Indication: HYPERTENSION
     Dosage: 20/25 MG QD
     Dates: start: 20071201
  8. FOLIC ACID [Concomitant]
     Dosage: UNK
     Dates: start: 20071001
  9. VITAMIN TAB [Concomitant]
     Dosage: UNK
     Dates: start: 20080301
  10. NEURONTIN [Concomitant]
     Indication: PAIN
     Dosage: 300 MG, TID
     Dates: start: 20080301
  11. LEXAPRO [Concomitant]
     Indication: DEPRESSION
     Dosage: 20 MG, QD
     Dates: start: 20080301
  12. FENTANYL [Concomitant]
     Indication: PAIN
     Dosage: UNK
     Route: 062
     Dates: start: 20080301
  13. ESTROGEN NOS [Concomitant]
     Route: 067
  14. GLIPIZIDE [Concomitant]
     Dosage: 10 MG, QD

REACTIONS (3)
  - DYSARTHRIA [None]
  - HEADACHE [None]
  - PYREXIA [None]
